FAERS Safety Report 7492284-0 (Version None)
Quarter: 2011Q2

REPORT INFORMATION
  Report Type: 
  Country: None (occurrence: None)
  Receive Date: 20110519
  Receipt Date: 20110512
  Transmission Date: 20111010
  Serious: Yes (Hospitalization)
  Sender: FDA-Public Use
  Company Number: US-SANOFI-AVENTIS-2011SA029691

PATIENT
  Age: 51 Year
  Sex: Female

DRUGS (3)
  1. GLIPIZIDE [Concomitant]
  2. LANTUS [Suspect]
     Indication: TYPE 2 DIABETES MELLITUS
     Dosage: 30 UNITS IN THE AM AND 15 UNITS IN THE PM
     Route: 058
     Dates: start: 20090101
  3. SOLOSTAR [Suspect]
     Indication: TYPE 2 DIABETES MELLITUS
     Dates: start: 20090101

REACTIONS (2)
  - VERTIGO [None]
  - BLOOD GLUCOSE INCREASED [None]
